FAERS Safety Report 4733268-2 (Version None)
Quarter: 2005Q3

REPORT INFORMATION
  Report Type: 
  Country: None (occurrence: None)
  Receive Date: 20050803
  Receipt Date: 20050726
  Transmission Date: 20060218
  Serious: Yes (Life-Threatening)
  Sender: FDA-Public Use
  Company Number: ES-ROCHE-412041

PATIENT
  Age: 59 Year
  Sex: Female
  Weight: 69 kg

DRUGS (2)
  1. PEGASYS [Suspect]
     Indication: HEPATITIS VIRAL
     Dosage: PREFILLED SYRINGE.
     Route: 058
     Dates: start: 20041026, end: 20041220
  2. PEGASYS [Suspect]
     Route: 058
     Dates: start: 20050115

REACTIONS (3)
  - ARTHRITIS [None]
  - LEUKOPENIA [None]
  - LICHENIFICATION [None]
